FAERS Safety Report 20429874 (Version 1)
Quarter: 2022Q1

REPORT INFORMATION
  Report Type: Report from Study
  Country: US (occurrence: US)
  Receive Date: 20220204
  Receipt Date: 20220204
  Transmission Date: 20220423
  Serious: Yes (Life-Threatening, Hospitalization)
  Sender: FDA-Public Use
  Company Number: US-SERVIER-S18010582

PATIENT

DRUGS (18)
  1. ONCASPAR [Suspect]
     Active Substance: PEGASPARGASE
     Indication: Acute lymphocytic leukaemia
     Dosage: 2500 IU/M2 ON DAY 6
     Route: 042
     Dates: start: 20181120, end: 20181120
  2. ONCASPAR [Suspect]
     Active Substance: PEGASPARGASE
     Dosage: 2500 IU/M2, DAY 6
     Route: 042
     Dates: start: 20190222, end: 20190222
  3. CYTARABINE [Suspect]
     Active Substance: CYTARABINE
     Indication: Acute lymphocytic leukaemia
     Dosage: 20 MG ON DAY 1
     Route: 037
     Dates: start: 20181112, end: 20181112
  4. CYTARABINE [Suspect]
     Active Substance: CYTARABINE
     Dosage: 20 MG, DAY 1
     Route: 037
     Dates: start: 20190214
  5. DEXAMETHASONE [Suspect]
     Active Substance: DEXAMETHASONE
     Indication: Acute lymphocytic leukaemia
     Dosage: 6 MG/M2 ON DAY 1-25
     Route: 042
     Dates: start: 20181115, end: 20181226
  6. DEXAMETHASONE [Suspect]
     Active Substance: DEXAMETHASONE
     Dosage: 6 MG/M2, DAYS 1-25
     Route: 042
     Dates: start: 20190214, end: 20190316
  7. VINCRISTINE [Suspect]
     Active Substance: VINCRISTINE
     Indication: Acute lymphocytic leukaemia
     Dosage: 1.5 MG/M2 ON DAY 4, 11 AND 18
     Route: 042
     Dates: start: 20181118, end: 20181209
  8. DOXORUBICIN [Suspect]
     Active Substance: DOXORUBICIN
     Indication: Acute lymphocytic leukaemia
     Dosage: 30 MG/M2 ON DAYS 11 AND 12
     Route: 042
     Dates: start: 20181125, end: 20181126
  9. DEXRAZOXANE [Suspect]
     Active Substance: DEXRAZOXANE
     Indication: Acute lymphocytic leukaemia
     Dosage: 30 MG/M2 ON DAYS 11 AND 12
     Route: 042
     Dates: start: 20181125, end: 20181126
  10. METHOTREXATE [Suspect]
     Active Substance: METHOTREXATE
     Indication: Product used for unknown indication
     Dosage: 5 G, ONE DOSE
     Route: 042
     Dates: start: 20190124, end: 20190124
  11. METHOTREXATE [Suspect]
     Active Substance: METHOTREXATE
     Dosage: 5 G, ONE DOSE
     Route: 042
     Dates: start: 20190214, end: 20190226
  12. MERCAPTOPURINE [Suspect]
     Active Substance: MERCAPTOPURINE
     Indication: Product used for unknown indication
     Dosage: 50 MG/M2, ON DAYS 1-14
     Route: 048
     Dates: start: 20190102, end: 20190206
  13. MERCAPTOPURINE [Suspect]
     Active Substance: MERCAPTOPURINE
     Dosage: 50 MG/M2, ON DAYS 1-14
     Route: 048
     Dates: start: 20190214, end: 20190227
  14. CLONAZEPAM [Concomitant]
     Active Substance: CLONAZEPAM
     Indication: Product used for unknown indication
     Dosage: UNK
     Route: 065
  15. ONDANSETRON [Concomitant]
     Active Substance: ONDANSETRON
     Indication: Product used for unknown indication
     Dosage: UNK
     Route: 065
  16. MORPHINE [Concomitant]
     Active Substance: MORPHINE
     Indication: Product used for unknown indication
     Dosage: UNK
     Route: 065
  17. PANTOPRAZOLE [Concomitant]
     Active Substance: PANTOPRAZOLE
     Indication: Product used for unknown indication
     Dosage: UNK
     Route: 065
  18. MILRINONE [Concomitant]
     Active Substance: MILRINONE
     Indication: Product used for unknown indication
     Dosage: UNK
     Route: 065

REACTIONS (7)
  - Respiratory failure [Recovered/Resolved]
  - Gastrointestinal haemorrhage [Unknown]
  - Colitis [Unknown]
  - Stridor [Unknown]
  - Gastric ulcer [Unknown]
  - Gastritis [Unknown]
  - Device related infection [Recovered/Resolved]

NARRATIVE: CASE EVENT DATE: 20181203
